FAERS Safety Report 11826113 (Version 1)
Quarter: 2015Q4

REPORT INFORMATION
  Report Type: Report from Study
  Country: FR (occurrence: FR)
  Receive Date: 20151211
  Receipt Date: 20151211
  Transmission Date: 20160305
  Serious: Yes (Death, Hospitalization, Other)
  Sender: FDA-Public Use
  Company Number: FR-BRISTOL-MYERS SQUIBB COMPANY-BMS-2015-054985

PATIENT
  Age: 65 Year
  Sex: Male
  Weight: 84 kg

DRUGS (2)
  1. PREDNISOLONE. [Concomitant]
     Active Substance: PREDNISOLONE
     Indication: PRODUCT USED FOR UNKNOWN INDICATION
     Route: 065
  2. NIVOLUMAB [Suspect]
     Active Substance: NIVOLUMAB
     Indication: NON-SMALL CELL LUNG CANCER
     Dosage: 250 MG, UNK
     Route: 065
     Dates: start: 20150721

REACTIONS (5)
  - Lung infection [Unknown]
  - General physical health deterioration [Unknown]
  - Infection [Unknown]
  - Malignant neoplasm progression [Fatal]
  - Spinal cord compression [Unknown]
